FAERS Safety Report 9397888 (Version 2)
Quarter: 2013Q3

REPORT INFORMATION
  Report Type: Spontaneous
  Country: US (occurrence: US)
  Receive Date: 20130712
  Receipt Date: 20130730
  Transmission Date: 20140515
  Serious: Yes (Hospitalization, Other)
  Sender: FDA-Public Use
  Company Number: US-PFIZER INC-2013203424

PATIENT
  Age: 46 Year
  Sex: Female

DRUGS (1)
  1. CHANTIX [Suspect]
     Dosage: 1 MG, 2X/DAY (STARTER PACK)
     Route: 048
     Dates: start: 20080403, end: 20080911

REACTIONS (2)
  - Intentional overdose [Unknown]
  - Suicide attempt [Unknown]
